FAERS Safety Report 12935016 (Version 3)
Quarter: 2016Q4

REPORT INFORMATION
  Report Type: Report from Study
  Country: US (occurrence: US)
  Receive Date: 20161113
  Receipt Date: 20161215
  Transmission Date: 20170207
  Serious: Yes (Hospitalization, Other)
  Sender: FDA-Public Use
  Company Number: US-BRISTOL-MYERS SQUIBB COMPANY-BMS-2016-018932

PATIENT
  Age: 56 Year
  Sex: Male
  Weight: 82 kg

DRUGS (9)
  1. LIRILUMAB [Suspect]
     Active Substance: LIRILUMAB
     Indication: HAEMATOLOGICAL MALIGNANCY
     Dosage: 3 MG/KG, UNK
     Route: 042
     Dates: start: 20160219, end: 20160219
  2. MIRALAX [Concomitant]
     Active Substance: POLYETHYLENE GLYCOL 3350
     Indication: PRODUCT USED FOR UNKNOWN INDICATION
     Dosage: UNK
     Route: 065
     Dates: start: 20160203
  3. SENOKOT [Concomitant]
     Active Substance: SENNOSIDES
     Indication: PRODUCT USED FOR UNKNOWN INDICATION
     Dosage: UNK
     Route: 065
     Dates: start: 20160205
  4. NIVOLUMAB [Suspect]
     Active Substance: NIVOLUMAB
     Indication: HAEMATOLOGICAL MALIGNANCY
     Dosage: 3 MG/KG, UNK
     Route: 042
     Dates: start: 20160219, end: 20160219
  5. DILAUDID [Concomitant]
     Active Substance: HYDROMORPHONE HYDROCHLORIDE
     Indication: PRODUCT USED FOR UNKNOWN INDICATION
     Dosage: UNK
     Route: 065
     Dates: start: 20160203
  6. PENICILLIN                         /00000901/ [Concomitant]
     Active Substance: PENICILLIN G
     Indication: PRODUCT USED FOR UNKNOWN INDICATION
     Dosage: UNK
     Route: 065
     Dates: start: 20160215
  7. PRILOSEC [Concomitant]
     Active Substance: OMEPRAZOLE MAGNESIUM
     Indication: PRODUCT USED FOR UNKNOWN INDICATION
     Dosage: UNK
     Route: 065
  8. OMEPRAZOLE. [Concomitant]
     Active Substance: OMEPRAZOLE
     Indication: PRODUCT USED FOR UNKNOWN INDICATION
     Dosage: UNK
     Route: 065
     Dates: start: 20160206, end: 20160209
  9. TYLENOL [Concomitant]
     Active Substance: ACETAMINOPHEN
     Indication: PRODUCT USED FOR UNKNOWN INDICATION
     Dosage: UNK
     Route: 065
     Dates: start: 20160203

REACTIONS (1)
  - Abdominal mass [Recovered/Resolved]

NARRATIVE: CASE EVENT DATE: 20160219
